FAERS Safety Report 8026171-6 (Version None)
Quarter: 2012Q1

REPORT INFORMATION
  Report Type: 
  Country: None (occurrence: None)
  Receive Date: 20120105
  Receipt Date: 20110711
  Transmission Date: 20120608
  Serious: No
  Sender: FDA-Public Use
  Company Number: US-ABBOTT-11P-163-0838942-00

PATIENT
  Age: 57 Year
  Sex: Female
  Weight: 74.456 kg

DRUGS (1)
  1. SYNTHROID [Suspect]
     Indication: THYROID FUNCTION TEST ABNORMAL
     Dosage: 75 MICROGRAMS DAILY
     Dates: start: 20070101

REACTIONS (1)
  - HYPERHIDROSIS [None]
